FAERS Safety Report 6701958-8 (Version None)
Quarter: 2010Q2

REPORT INFORMATION
  Report Type: 
  Country: None (occurrence: None)
  Receive Date: 20100429
  Receipt Date: 20100422
  Transmission Date: 20101027
  Serious: Yes (Death)
  Sender: FDA-Public Use
  Company Number: GB-ROCHE-697931

PATIENT
  Age: 23 Year
  Sex: Female

DRUGS (4)
  1. OSELTAMIVIR PHOSPHATE [Suspect]
     Indication: INFLUENZA
     Route: 065
  2. PROPOFOL [Interacting]
     Indication: SEDATION
     Route: 042
  3. ALFENTANIL [Concomitant]
     Indication: SEDATION
  4. MIDAZOLAM HCL [Concomitant]

REACTIONS (3)
  - BLOOD TRIGLYCERIDES INCREASED [None]
  - DRUG INTERACTION [None]
  - PULMONARY EMBOLISM [None]
